FAERS Safety Report 5196372-3 (Version None)
Quarter: 2006Q4

REPORT INFORMATION
  Report Type: 
  Country: None (occurrence: None)
  Receive Date: 20061222
  Receipt Date: 20061206
  Transmission Date: 20070319
  Serious: Yes (Hospitalization)
  Sender: FDA-Public Use
  Company Number: 8020617

PATIENT
  Age: 27 Year
  Sex: Female

DRUGS (5)
  1. THEOPHYLLINE [Suspect]
     Indication: ASTHMA
     Dosage: IV;
     Route: 042
  2. BETA 2-AGONIST [Suspect]
     Indication: ASTHMA
     Dosage: NI, INH
     Route: 055
  3. BETAMETHASONE [Suspect]
     Indication: ASTHMA
     Dosage: 1.5 MG; IV
     Route: 042
  4. ANTICHOLINERGIC [Suspect]
     Indication: ASTHMA
     Dosage: NI
  5. LEUKOTRIENE RECEPTOR-ANTAGONIST [Suspect]
     Indication: ASTHMA
     Dosage: NI

REACTIONS (3)
  - CAESAREAN SECTION [None]
  - DRUG EXPOSURE DURING PREGNANCY [None]
  - DRUG INEFFECTIVE [None]
